FAERS Safety Report 5016565-5 (Version None)
Quarter: 2006Q2

REPORT INFORMATION
  Report Type: 
  Country: None (occurrence: None)
  Receive Date: 20060531
  Receipt Date: 20060531
  Transmission Date: 20061013
  Serious: Yes (Other)
  Sender: FDA-Public Use
  Company Number: None

PATIENT
  Sex: Female
  Weight: 61.2356 kg

DRUGS (5)
  1. OXYCONTIN [Suspect]
     Indication: PAIN
     Dates: start: 20050701, end: 20050708
  2. OXYCONTIN [Suspect]
     Indication: ROAD TRAFFIC ACCIDENT
     Dates: start: 20050701, end: 20050708
  3. CARISOPRODOL [Suspect]
     Indication: CLONUS
     Dates: start: 20060327, end: 20060426
  4. CARISOPRODOL [Suspect]
     Indication: MUSCLE SPASMS
     Dates: start: 20060327, end: 20060426
  5. CARISOPRODOL [Suspect]
     Indication: POST PROCEDURAL COMPLICATION
     Dates: start: 20060327, end: 20060426

REACTIONS (4)
  - DRUG INEFFECTIVE [None]
  - PANIC ATTACK [None]
  - PHARMACEUTICAL PRODUCT COMPLAINT [None]
  - POOR QUALITY DRUG ADMINISTERED [None]
